FAERS Safety Report 8597707-1 (Version None)
Quarter: 2012Q3

REPORT INFORMATION
  Report Type: 
  Country: None (occurrence: None)
  Receive Date: 20120816
  Receipt Date: 20120810
  Transmission Date: 20120928
  Serious: Yes (Hospitalization)
  Sender: FDA-Public Use
  Company Number: CA-PFIZER INC-2012195808

PATIENT
  Age: 54 Year
  Sex: Female

DRUGS (2)
  1. ZIPRASIDONE HYDROCHLORIDE [Suspect]
     Dosage: UNK
  2. CLOZARIL [Suspect]
     Dosage: UNK

REACTIONS (4)
  - THERAPEUTIC RESPONSE DECREASED [None]
  - LOGORRHOEA [None]
  - AGITATION [None]
  - STRESS [None]
